FAERS Safety Report 25604758 (Version 1)
Quarter: 2025Q3

REPORT INFORMATION
  Report Type: Spontaneous
  Country: JP (occurrence: None)
  Receive Date: 20250725
  Receipt Date: 20250725
  Transmission Date: 20251021
  Serious: Yes (Hospitalization, Other)
  Sender: ACS DOBFAR
  Company Number: JP-ACS-20250388

PATIENT
  Age: 51 Year
  Sex: Female

DRUGS (2)
  1. CEFTRIAXONE [Suspect]
     Active Substance: CEFTRIAXONE
     Indication: Leptospirosis
  2. CLINDAMYCIN [Concomitant]
     Active Substance: CLINDAMYCIN
     Indication: Toxic shock syndrome

REACTIONS (2)
  - Jarisch-Herxheimer reaction [Recovered/Resolved]
  - Off label use [Unknown]
